FAERS Safety Report 7572743-2 (Version None)
Quarter: 2011Q2

REPORT INFORMATION
  Report Type: 
  Country: None (occurrence: None)
  Receive Date: 20110620
  Receipt Date: 20110608
  Transmission Date: 20111010
  Serious: Yes (Life-Threatening)
  Sender: FDA-Public Use
  Company Number: 948951

PATIENT
  Age: 35 Year
  Sex: Male

DRUGS (6)
  1. METHOTREXATE [Suspect]
     Indication: B-CELL LYMPHOMA
     Dosage: 6595 MG, INTRAVENOUS
     Route: 042
     Dates: start: 20110405, end: 20110405
  2. NORVIR [Concomitant]
  3. PREZISTA [Concomitant]
  4. CYTARABINE [Suspect]
     Indication: B-CELL LYMPHOMA
     Dosage: 7520 MG, INTRAVENOUS
     Route: 042
     Dates: start: 20110405, end: 20110407
  5. ACYCLOVIR [Concomitant]
  6. ABACAVIR SULFATE AND LAMIVUDINE [Concomitant]

REACTIONS (3)
  - ENCEPHALITIS [None]
  - RENAL FAILURE ACUTE [None]
  - PERIPHERAL SENSORY NEUROPATHY [None]
